FAERS Safety Report 6375408-8 (Version None)
Quarter: 2009Q3

REPORT INFORMATION
  Report Type: 
  Country: None (occurrence: None)
  Receive Date: 20090921
  Receipt Date: 20090908
  Transmission Date: 20100115
  Serious: Yes (Other)
  Sender: FDA-Public Use
  Company Number: AVE_00855_2009

PATIENT
  Age: 28 Year
  Sex: Male

DRUGS (1)
  1. NICOTINE [Suspect]
     Indication: SMOKING CESSATION THERAPY
     Dosage: 21 MG 2X TRANSDERMAL
     Route: 062
     Dates: start: 20090903, end: 20090904

REACTIONS (7)
  - ARTERIOVENOUS FISTULA SITE COMPLICATION [None]
  - BLOOD PRESSURE INCREASED [None]
  - DEVICE MALFUNCTION [None]
  - DIALYSIS [None]
  - HEART RATE INCREASED [None]
  - IRRITABILITY [None]
  - PULSE ABSENT [None]
